FAERS Safety Report 9779520 (Version 2)
Quarter: 2014Q1

REPORT INFORMATION
  Report Type: Spontaneous
  Country: US (occurrence: US)
  Receive Date: 20131223
  Receipt Date: 20140129
  Transmission Date: 20141002
  Serious: No
  Sender: FDA-Public Use
  Company Number: US-PFIZER INC-2013364256

PATIENT
  Age: 85 Year
  Sex: Female

DRUGS (1)
  1. AROMASIN [Suspect]
     Dosage: 25 MG, DAILY
     Dates: start: 2013

REACTIONS (2)
  - Sinus disorder [Unknown]
  - Headache [Unknown]
